FAERS Safety Report 15219963 (Version 1)
Quarter: 2018Q3

REPORT INFORMATION
  Report Type: Spontaneous
  Country: US (occurrence: US)
  Receive Date: 20180703
  Receipt Date: 20180703
  Transmission Date: 20181010
  Serious: Yes (Death)
  Sender: FDA-Public Use
  Company Number: None

PATIENT
  Age: 58 Year
  Sex: Male
  Weight: 58 kg

DRUGS (1)
  1. GLECAPREVIR/PIBRENTASVIR [Suspect]
     Active Substance: GLECAPREVIR\PIBRENTASVIR
     Route: 048
     Dates: start: 20171115, end: 20180203

REACTIONS (4)
  - Mouth haemorrhage [None]
  - Gun shot wound [None]
  - Completed suicide [None]
  - Therapy cessation [None]

NARRATIVE: CASE EVENT DATE: 20180219
